FAERS Safety Report 13622452 (Version 1)
Quarter: 2017Q2

REPORT INFORMATION
  Report Type: Spontaneous
  Country: US (occurrence: US)
  Receive Date: 20170607
  Receipt Date: 20170607
  Transmission Date: 20170830
  Serious: No
  Sender: FDA-Public Use
  Company Number: US-ROCHE-1014616

PATIENT
  Age: 68 Year
  Sex: Male
  Weight: 80.81 kg

DRUGS (1)
  1. FUZEON [Suspect]
     Active Substance: ENFUVIRTIDE
     Indication: ACQUIRED IMMUNODEFICIENCY SYNDROME
     Route: 058
     Dates: start: 20111103

REACTIONS (2)
  - Injection site swelling [Not Recovered/Not Resolved]
  - Injection site erythema [Not Recovered/Not Resolved]

NARRATIVE: CASE EVENT DATE: 20111103
